FAERS Safety Report 11676858 (Version 2)
Quarter: 2019Q4

REPORT INFORMATION
  Report Type: Spontaneous
  Country: PE (occurrence: PE)
  Receive Date: 20151028
  Receipt Date: 20191122
  Transmission Date: 20200122
  Serious: Yes (Death, Hospitalization)
  Sender: FDA-Public Use
  Company Number: PE-TEVA-603174ISR

PATIENT
  Age: 51 Year
  Sex: Male

DRUGS (2)
  1. FILARTROS [Suspect]
     Active Substance: LEFLUNOMIDE
     Indication: ARTHRITIS
     Dosage: 20 MILLIGRAM DAILY; THE PATIENT STARTED ON FILARTROS MORE THAN TWO YEARS AGO UNTIL FEB-2015
     Route: 048
     Dates: end: 201502
  2. HYDROCHLOROTHIAZIDE. [Concomitant]
     Active Substance: HYDROCHLOROTHIAZIDE
     Indication: DIURETIC THERAPY
     Dosage: 25 MILLIGRAM DAILY; THE PATIENT STARTED ON HYDROCHLOROTIAZIDE ONE YEAR AGO.
     Route: 048
     Dates: end: 201505

REACTIONS (5)
  - Hypersensitivity [Recovered/Resolved]
  - Dyspnoea [Unknown]
  - Dizziness [Unknown]
  - Myocardial infarction [Fatal]
  - Decreased appetite [Unknown]

NARRATIVE: CASE EVENT DATE: 201502
